FAERS Safety Report 10956199 (Version 1)
Quarter: 2015Q1

REPORT INFORMATION
  Report Type: Spontaneous
  Country: FR (occurrence: FR)
  Receive Date: 20150326
  Receipt Date: 20150326
  Transmission Date: 20150721
  Serious: Yes (Other)
  Sender: FDA-Public Use
  Company Number: FR-BIOGENIDEC-2015BI034086

PATIENT
  Age: 48 Year
  Sex: Female

DRUGS (2)
  1. TECFIDERA [Suspect]
     Active Substance: DIMETHYL FUMARATE
     Indication: MULTIPLE SCLEROSIS
     Dates: start: 201405
  2. TECFIDERA [Suspect]
     Active Substance: DIMETHYL FUMARATE
     Indication: MULTIPLE SCLEROSIS
     Dates: start: 20140821, end: 201503

REACTIONS (2)
  - Breast cancer [Not Recovered/Not Resolved]
  - Metabolic syndrome [Unknown]

NARRATIVE: CASE EVENT DATE: 2014
